FAERS Safety Report 9981276 (Version 5)
Quarter: 2014Q4

REPORT INFORMATION
  Report Type: Report from Study
  Country: DE (occurrence: DE)
  Receive Date: 20140307
  Receipt Date: 20141202
  Transmission Date: 20150529
  Serious: Yes (Other)
  Sender: FDA-Public Use
  Company Number: DE-BEH-2014039844

PATIENT
  Age: 28 Year
  Sex: Female
  Weight: 53 kg

DRUGS (8)
  1. HIZENTRA [Suspect]
     Active Substance: HUMAN IMMUNOGLOBULIN G
     Dosage: INFUSION RATE 30ML/H, TOTAL DOSE 151MG/KG, 2 INJECTION SITES (BELLY), INJECTION VOLUME/SITE 20 ML
     Route: 058
     Dates: start: 20130904, end: 20130904
  2. HIZENTRA [Suspect]
     Active Substance: HUMAN IMMUNOGLOBULIN G
     Route: 058
     Dates: start: 20131021, end: 20131021
  3. HIZENTRA [Suspect]
     Active Substance: HUMAN IMMUNOGLOBULIN G
     Route: 058
     Dates: start: 20131015, end: 20131030
  4. HIZENTRA [Suspect]
     Active Substance: HUMAN IMMUNOGLOBULIN G
     Route: 058
     Dates: start: 20130909, end: 20130909
  5. HIZENTRA [Suspect]
     Active Substance: HUMAN IMMUNOGLOBULIN G
     Route: 058
     Dates: start: 20130924, end: 20130924
  6. HIZENTRA [Suspect]
     Active Substance: HUMAN IMMUNOGLOBULIN G
     Indication: SELECTIVE IGG SUBCLASS DEFICIENCY
     Route: 058
     Dates: start: 20130930, end: 20130930
  7. HIZENTRA [Suspect]
     Active Substance: HUMAN IMMUNOGLOBULIN G
     Route: 058
     Dates: start: 20131029, end: 20131029
  8. THYRONAJOD [Concomitant]
     Active Substance: LEVOTHYROXINE SODIUM\POTASSIUM IODIDE

REACTIONS (7)
  - Papule [Recovered/Resolved with Sequelae]
  - Secretion discharge [Recovered/Resolved with Sequelae]
  - Scar [Recovered/Resolved with Sequelae]
  - Granuloma [Recovered/Resolved with Sequelae]
  - Pain [Recovered/Resolved]
  - Blister [Recovered/Resolved with Sequelae]
  - Rash pustular [Recovered/Resolved with Sequelae]

NARRATIVE: CASE EVENT DATE: 201310
